FAERS Safety Report 8521629-5 (Version None)
Quarter: 2012Q3

REPORT INFORMATION
  Report Type: 
  Country: None (occurrence: None)
  Receive Date: 20120719
  Receipt Date: 20120716
  Transmission Date: 20120928
  Serious: Yes (Disabling)
  Sender: FDA-Public Use
  Company Number: PHHY2012IT037071

PATIENT
  Sex: Female

DRUGS (6)
  1. VALPRESSION [Concomitant]
  2. ZOMETA [Suspect]
     Indication: BREAST CANCER METASTATIC
     Route: 042
     Dates: start: 20060801, end: 20080401
  3. DURAGESIC-100 [Concomitant]
  4. MICARDIS [Concomitant]
  5. ZOMETA [Suspect]
     Route: 042
     Dates: start: 20100101, end: 20101216
  6. LEVOTHYROXINE SODIUM [Concomitant]

REACTIONS (2)
  - OSTEONECROSIS OF JAW [None]
  - EXPOSED BONE IN JAW [None]
